FAERS Safety Report 6720438-7 (Version None)
Quarter: 2010Q2

REPORT INFORMATION
  Report Type: 
  Country: None (occurrence: None)
  Receive Date: 20100511
  Receipt Date: 20100503
  Transmission Date: 20101027
  Serious: Yes (Life-Threatening, Hospitalization, Other)
  Sender: FDA-Public Use
  Company Number: DE-WYE-H14996010

PATIENT
  Age: 73 Year
  Sex: Female

DRUGS (8)
  1. AMIODARONE [Suspect]
     Indication: TACHYCARDIA
     Route: 048
     Dates: start: 20090201
  2. LEVOTHYROXINE SODIUM [Concomitant]
     Dates: start: 20090317
  3. AMLODIPINE [Concomitant]
  4. RAMIPRIL [Suspect]
     Indication: HYPERTENSION
     Route: 048
     Dates: start: 20090201, end: 20100108
  5. SPIRONOLACTONE [Suspect]
     Indication: HYPERTENSION
     Route: 048
     Dates: start: 20091201, end: 20100108
  6. BISOPROLOL [Concomitant]
  7. SIMVASTATIN [Concomitant]
     Dates: start: 20090317
  8. ACETYLSALICYLIC ACID [Concomitant]

REACTIONS (2)
  - HYPONATRAEMIA [None]
  - HYPOTHYROIDISM [None]
